FAERS Safety Report 6185561-7 (Version None)
Quarter: 2009Q2

REPORT INFORMATION
  Report Type: 
  Country: None (occurrence: None)
  Receive Date: 20090511
  Receipt Date: 20090426
  Transmission Date: 20091009
  Serious: Yes (Other)
  Sender: FDA-Public Use
  Company Number: MX-GENENTECH-281574

PATIENT
  Sex: Male

DRUGS (6)
  1. MABTHERA [Suspect]
     Indication: NON-HODGKIN'S LYMPHOMA
     Dosage: UNK
     Route: 042
     Dates: start: 20080101
  2. INSULIN [Concomitant]
     Indication: DRUG USE FOR UNKNOWN INDICATION
     Dosage: UNK
     Dates: start: 20071101
  3. IFOSFAMIDE [Concomitant]
     Indication: DRUG USE FOR UNKNOWN INDICATION
     Dosage: UNK
     Dates: start: 20090101
  4. MESNA [Concomitant]
     Indication: DRUG USE FOR UNKNOWN INDICATION
     Dosage: UNK
     Dates: start: 20090101
  5. ETOPOSIDE [Concomitant]
     Indication: DRUG USE FOR UNKNOWN INDICATION
     Dosage: UNK
     Dates: start: 20090101
  6. CARBOPLATIN [Concomitant]
     Indication: DRUG USE FOR UNKNOWN INDICATION
     Dosage: UNK
     Dates: start: 20090101

REACTIONS (1)
  - VERTIGO [None]
